FAERS Safety Report 12176495 (Version 1)
Quarter: 2016Q1

REPORT INFORMATION
  Report Type: Spontaneous
  Country: US (occurrence: US)
  Receive Date: 20160314
  Receipt Date: 20160314
  Transmission Date: 20160526
  Serious: No
  Sender: FDA-Public Use
  Company Number: US-AKORN PHARMACEUTICALS-2015AKN00710

PATIENT
  Age: 22 Year
  Sex: Female
  Weight: 68.27 kg

DRUGS (3)
  1. MYORISAN [Suspect]
     Active Substance: ISOTRETINOIN
     Indication: ACNE
     Dosage: UNK MG, UNK
     Route: 048
     Dates: start: 20150105, end: 20151216
  2. UNSPECIFIED ORAL CONTRACEPTIVE PILL [Concomitant]
     Dosage: UNK MG, UNK
     Route: 048
  3. CLARAVIS [Suspect]
     Active Substance: ISOTRETINOIN
     Indication: ACNE
     Dosage: UNK MG, UNK
     Route: 048
     Dates: start: 20150303, end: 2015

REACTIONS (1)
  - Arthralgia [Unknown]

NARRATIVE: CASE EVENT DATE: 20151201
